FAERS Safety Report 10667831 (Version 1)
Quarter: 2014Q4

REPORT INFORMATION
  Report Type: Spontaneous
  Country: US (occurrence: None)
  Receive Date: 20141208
  Receipt Date: 20141208
  Transmission Date: 20150529
  Serious: No
  Sender: FDA-Public Use
  Company Number: 2014TUS006538

PATIENT
  Age: 63 Year
  Sex: Female
  Weight: 68.9 kg

DRUGS (6)
  1. KLONOPIN [Concomitant]
     Active Substance: CLONAZEPAM
  2. METFORMIN ER (METFORMIN HYDROCHLORIDE) [Concomitant]
  3. BAYER ARTHRITIS PAIN REGIMEN (ACETYLSALICYLIC ACID) [Concomitant]
  4. AMBIEN CR (ZOLPIDEM TARTRATE) [Concomitant]
  5. BRINTELLIX [Suspect]
     Active Substance: VORTIOXETINE HYDROBROMIDE
     Indication: MAJOR DEPRESSION
     Route: 048
     Dates: start: 20140712
  6. ALPRAZOLAM. [Concomitant]
     Active Substance: ALPRAZOLAM

REACTIONS (3)
  - Irritability [None]
  - Nausea [None]
  - Abdominal pain upper [None]

NARRATIVE: CASE EVENT DATE: 201407
